FAERS Safety Report 15747838 (Version 1)
Quarter: 2018Q4

REPORT INFORMATION
  Report Type: Spontaneous
  Country: US (occurrence: US)
  Receive Date: 20181221
  Receipt Date: 20181221
  Transmission Date: 20190205
  Serious: Yes (Other)
  Sender: FDA-Public Use
  Company Number: US-ROCHE-2230387

PATIENT
  Sex: Male
  Weight: 65.83 kg

DRUGS (3)
  1. LUCENTIS [Suspect]
     Active Substance: RANIBIZUMAB
     Indication: MACULAR DEGENERATION
     Dosage: ONGOING:YES
     Route: 031
  2. LUCENTIS [Suspect]
     Active Substance: RANIBIZUMAB
     Dosage: ONGOING: NO
     Route: 031
  3. LUCENTIS [Suspect]
     Active Substance: RANIBIZUMAB
     Dosage: RECEIVED IN RIGHT EYE
     Route: 031
     Dates: start: 20180808

REACTIONS (7)
  - Memory impairment [Not Recovered/Not Resolved]
  - Headache [Recovered/Resolved]
  - Abdominal discomfort [Recovered/Resolved]
  - Hypoacusis [Not Recovered/Not Resolved]
  - Retinal haemorrhage [Unknown]
  - Vitreous floaters [Recovered/Resolved]
  - Malaise [Unknown]
